FAERS Safety Report 4684561-3 (Version None)
Quarter: 2005Q2

REPORT INFORMATION
  Report Type: 
  Country: None (occurrence: None)
  Receive Date: 20050603
  Receipt Date: 20050526
  Transmission Date: 20051028
  Serious: Yes (Other)
  Sender: FDA-Public Use
  Company Number: 200512240BCC

PATIENT
  Age: 81 Year
  Sex: Male
  Weight: 89.8122 kg

DRUGS (4)
  1. ORIGINAL ALKA SELTZER [Suspect]
     Indication: GASTROINTESTINAL DISORDER
     Dosage: 325-650 MG, QD, ORAL; A FEW WEEKS
     Route: 048
  2. BLOOD THINNER [Concomitant]
  3. SLEEP AID [Concomitant]
  4. ANTI-ANXIETY [Concomitant]

REACTIONS (3)
  - CONDITION AGGRAVATED [None]
  - GASTROINTESTINAL DISORDER [None]
  - STOMACH DISCOMFORT [None]
